FAERS Safety Report 6903104-4 (Version None)
Quarter: 2010Q3

REPORT INFORMATION
  Report Type: 
  Country: None (occurrence: None)
  Receive Date: 20100803
  Receipt Date: 20080710
  Transmission Date: 20110219
  Serious: Yes (Other)
  Sender: FDA-Public Use
  Company Number: US-PFIZER INC-2008018621

PATIENT
  Sex: Male
  Weight: 85 kg

DRUGS (9)
  1. LYRICA [Suspect]
     Indication: NEURALGIA
     Route: 048
     Dates: start: 20071201, end: 20080228
  2. LYRICA [Suspect]
     Indication: HEADACHE
  3. PREVACID [Suspect]
     Indication: GASTROOESOPHAGEAL REFLUX DISEASE
     Route: 048
     Dates: start: 20061009
  4. ZOLOFT [Concomitant]
     Route: 048
     Dates: start: 20080222
  5. LEVITRA [Concomitant]
     Route: 048
     Dates: start: 20080222
  6. ZYRTEC [Concomitant]
     Route: 048
     Dates: start: 20061009
  7. FLONASE [Concomitant]
     Route: 045
     Dates: start: 20061009
  8. HYDROXYZINE [Concomitant]
     Route: 048
  9. SERTRALINE HYDROCHLORIDE [Concomitant]

REACTIONS (6)
  - ANGIOEDEMA [None]
  - BLISTER [None]
  - BURNING SENSATION [None]
  - PAIN [None]
  - PRURITUS [None]
  - RASH ERYTHEMATOUS [None]
